FAERS Safety Report 10034081 (Version 1)
Quarter: 2014Q1

REPORT INFORMATION
  Report Type: Spontaneous
  Country: US (occurrence: None)
  Receive Date: 20140324
  Receipt Date: 20140324
  Transmission Date: 20141002
  Serious: Yes (Hospitalization)
  Sender: FDA-Public Use
  Company Number: None

PATIENT
  Age: 65 Year
  Sex: Male
  Weight: 82.1 kg

DRUGS (2)
  1. CARBOPLATIN [Suspect]
     Dates: end: 20140317
  2. TAXOL (PACLITAXEL) [Suspect]
     Dates: end: 20140317

REACTIONS (5)
  - Nephrolithiasis [None]
  - Hydronephrosis [None]
  - Calculus ureteric [None]
  - Nausea [None]
  - Retching [None]
